FAERS Safety Report 14126074 (Version 1)
Quarter: 2017Q4

REPORT INFORMATION
  Report Type: Spontaneous
  Country: US (occurrence: US)
  Receive Date: 20171025
  Receipt Date: 20171025
  Transmission Date: 20180321
  Serious: No
  Sender: FDA-Public Use
  Company Number: US-BAYER-2017-205371

PATIENT
  Age: 76 Year
  Sex: Male
  Weight: 74 kg

DRUGS (3)
  1. BUPROPION. [Concomitant]
     Active Substance: BUPROPION
  2. MULTIVITAMIN [Concomitant]
     Active Substance: VITAMINS
  3. MIRALAX [Suspect]
     Active Substance: POLYETHYLENE GLYCOL 3350
     Indication: GASTROINTESTINAL DISORDER
     Dosage: 17G IN 8 OUNCE OF WATER DOSE
     Route: 048
     Dates: end: 20171023

REACTIONS (3)
  - Product use issue [Unknown]
  - Wrong technique in product usage process [Unknown]
  - Product use issue [Unknown]

NARRATIVE: CASE EVENT DATE: 201709
